FAERS Safety Report 4810341-1 (Version None)
Quarter: 2005Q4

REPORT INFORMATION
  Report Type: 
  Country: None (occurrence: None)
  Receive Date: 20051024
  Receipt Date: 20051013
  Transmission Date: 20060501
  Serious: Yes (Hospitalization)
  Sender: FDA-Public Use
  Company Number: 2005-03898

PATIENT
  Age: 88 Year
  Sex: Male

DRUGS (7)
  1. TRAMADOL HCL [Suspect]
     Dosage: UNK, UNKNOWN, ORAL
     Route: 048
  2. FELODIPINE [Concomitant]
  3. CLONIDINE [Concomitant]
  4. HYDROCHLOROTHIAZIDE [Concomitant]
  5. ASPIRIN [Concomitant]
  6. PAROXETINE HCL [Concomitant]
  7. ESOMEPRAZOLE (ESOMEPRAZOLE) [Concomitant]

REACTIONS (1)
  - PERICARDITIS [None]
